FAERS Safety Report 16643356 (Version 4)
Quarter: 2019Q3

REPORT INFORMATION
  Report Type: Spontaneous
  Country: US (occurrence: US)
  Receive Date: 20190729
  Receipt Date: 20190814
  Transmission Date: 20191004
  Serious: No
  Sender: FDA-Public Use
  Company Number: US-PFIZER INC-2019320355

PATIENT
  Age: 76 Year
  Sex: Female

DRUGS (1)
  1. IBRANCE [Suspect]
     Active Substance: PALBOCICLIB
     Indication: BREAST CANCER FEMALE
     Dosage: 100 MG, CYCLIC (ON FOR 21 DAYS AND OFF FOR 14 DAYS)/DAYS 1-21 EVERY 35 DAY CYCLE
     Route: 048

REACTIONS (2)
  - Neoplasm progression [Unknown]
  - Full blood count decreased [Unknown]
